FAERS Safety Report 8248395-5 (Version None)
Quarter: 2012Q1

REPORT INFORMATION
  Report Type: 
  Country: None (occurrence: None)
  Receive Date: 20120330
  Receipt Date: 20120321
  Transmission Date: 20120608
  Serious: Yes (Hospitalization)
  Sender: FDA-Public Use
  Company Number: ES-ABBOTT-11P-144-0873963-01

PATIENT
  Age: 35 Year
  Sex: Female

DRUGS (16)
  1. COMMERCIAL HUMIRA [Concomitant]
     Indication: CROHN'S DISEASE
     Route: 058
     Dates: start: 20081001
  2. CIPROFLOXACIN HCL [Concomitant]
     Indication: PYREXIA
     Route: 042
     Dates: start: 20090514, end: 20090518
  3. HUMIRA [Suspect]
     Route: 058
     Dates: start: 20090318, end: 20090507
  4. PREDNISONE TAB [Concomitant]
  5. HUMIRA [Suspect]
     Route: 058
     Dates: start: 20090521, end: 20090819
  6. PREDNISONE TAB [Concomitant]
  7. PREDNISONE TAB [Concomitant]
  8. HUMIRA [Suspect]
     Indication: CROHN'S DISEASE
     Route: 058
     Dates: start: 20090128
  9. PREDNISONE TAB [Concomitant]
     Indication: CROHN'S DISEASE
     Dates: start: 20090521
  10. PREDNISONE TAB [Concomitant]
     Dates: end: 20090726
  11. CALCIUM W/VITAMIN D NOS [Concomitant]
     Indication: MINERAL SUPPLEMENTATION
     Dates: start: 20090521, end: 20090726
  12. PREDNISONE TAB [Concomitant]
  13. HUMIRA [Suspect]
     Route: 058
     Dates: start: 20090923, end: 20091111
  14. PREDNISONE TAB [Concomitant]
  15. METRONIDAZOLE [Concomitant]
     Indication: PYREXIA
     Route: 042
     Dates: start: 20090514, end: 20090518
  16. PREDNISONE TAB [Concomitant]

REACTIONS (1)
  - CROHN'S DISEASE [None]
